FAERS Safety Report 21763214 (Version 1)
Quarter: 2022Q4

REPORT INFORMATION
  Report Type: Spontaneous
  Country: US (occurrence: None)
  Receive Date: 20221221
  Receipt Date: 20221221
  Transmission Date: 20230113
  Serious: Yes (Hospitalization)
  Sender: FDA-Public Use
  Company Number: None

PATIENT
  Sex: Female

DRUGS (2)
  1. VERZENIO [Suspect]
     Active Substance: ABEMACICLIB
     Indication: Breast cancer female
     Dosage: FREQUENCY : DAILY;?
     Route: 048
     Dates: start: 202211
  2. VERZENIO [Suspect]
     Active Substance: ABEMACICLIB
     Indication: Intraductal proliferative breast lesion

REACTIONS (6)
  - Diarrhoea [None]
  - Abdominal pain upper [None]
  - Nausea [None]
  - Hypophagia [None]
  - Blood pressure decreased [None]
  - Haemoglobin decreased [None]
